FAERS Safety Report 8163690-6 (Version None)
Quarter: 2012Q1

REPORT INFORMATION
  Report Type: 
  Country: None (occurrence: None)
  Receive Date: 20120224
  Receipt Date: 20120210
  Transmission Date: 20120608
  Serious: Yes (Hospitalization, Other)
  Sender: FDA-Public Use
  Company Number: PHEH2012US003151

PATIENT
  Sex: Female
  Weight: 181.8 kg

DRUGS (15)
  1. ZOLOFT [Concomitant]
     Dosage: 500 MG, DAILY
     Route: 048
  2. DIPHENHYDRAMINE HCL [Concomitant]
  3. FOLIC ACID [Concomitant]
     Dosage: 1 MG,DAILY
     Route: 048
  4. DEXAMETHASONE [Concomitant]
     Dosage: 4 MG, 2 TABS 1 HOUR BEFORE EACH VIDAZA TREATMENT
     Route: 048
  5. LASIX [Concomitant]
     Dosage: 40 MG, DAILY
     Route: 048
  6. ACETAMINOPHEN [Concomitant]
     Dosage: 500 MG, TAKE 2 AS DIRECTED
     Route: 048
  7. ALLOPURINOL [Concomitant]
     Dosage: 100 MG, DAILY
     Route: 048
  8. AMLODIPINE BESYLATE [Concomitant]
     Dosage: 5 MG, DAILY
     Route: 048
  9. LOMOTIL [Concomitant]
     Dosage: 2.5 MG-0.25 MG,QID PRN
     Route: 048
  10. AZACITIDINE [Suspect]
     Dosage: 137 MG, UNK
     Route: 042
  11. METOPROLOL TARTRATE [Concomitant]
     Dosage: 50 MG, BID
     Route: 048
  12. ACETAMINOPHEN AND HYDROCODONE BITARTRATE [Concomitant]
     Indication: PAIN
     Dosage: 5 MG-500 MG, TAKE 2,Q4-6H PRN
  13. WYDASE [Concomitant]
  14. EXJADE [Suspect]
     Indication: HAEMOCHROMATOSIS
     Dosage: 250 MG, TID
     Route: 048
     Dates: start: 20120121
  15. RED BLOOD CELLS, CONCENTRATED [Concomitant]

REACTIONS (8)
  - HAEMATOCRIT INCREASED [None]
  - LUMBAR SPINAL STENOSIS [None]
  - OSTEOARTHRITIS [None]
  - HYPERTENSION [None]
  - DEHYDRATION [None]
  - BODY TEMPERATURE INCREASED [None]
  - DIARRHOEA [None]
  - HAEMOGLOBIN DECREASED [None]
